FAERS Safety Report 23816355 (Version 1)
Quarter: 2024Q2

REPORT INFORMATION
  Report Type: Spontaneous
  Country: CN (occurrence: None)
  Receive Date: 20240503
  Receipt Date: 20240503
  Transmission Date: 20240717
  Serious: Yes (Hospitalization, Other)
  Sender: FDA-Public Use
  Company Number: 2024A103652

PATIENT
  Age: 64 Year
  Sex: Male
  Weight: 75 kg

DRUGS (5)
  1. DURVALUMAB [Suspect]
     Active Substance: DURVALUMAB
     Indication: Lung neoplasm malignant
     Route: 042
     Dates: start: 20231205, end: 20231205
  2. ETOPOSIDE [Suspect]
     Active Substance: ETOPOSIDE
     Indication: Lung neoplasm malignant
     Route: 042
     Dates: start: 20231205, end: 20231207
  3. CISPLATIN [Suspect]
     Active Substance: CISPLATIN
     Indication: Lung neoplasm malignant
     Route: 042
     Dates: start: 20231205, end: 20231208
  4. SODIUM CHLORIDE [Concomitant]
     Active Substance: SODIUM CHLORIDE
     Indication: Solvent sensitivity
     Route: 042
     Dates: start: 20231205, end: 20231205
  5. SODIUM CHLORIDE [Concomitant]
     Active Substance: SODIUM CHLORIDE
     Indication: Solvent sensitivity
     Route: 042
     Dates: start: 20231205, end: 20231208

REACTIONS (1)
  - Myelosuppression [Recovering/Resolving]

NARRATIVE: CASE EVENT DATE: 20231225
